FAERS Safety Report 7553689 (Version 2)
Quarter: 2013Q1

REPORT INFORMATION
  Report Type: Spontaneous
  Country: US (occurrence: US)
  Receive Date: 20100825
  Receipt Date: 20130204
  Transmission Date: 20140127
  Serious: Yes (Hospitalization, Other)
  Sender: FDA-Public Use
  Company Number: US-BRISTOL-MYERS SQUIBB COMPANY-15184898

PATIENT
  Age: 59 Year
  Sex: Female
  Weight: 117.91 kg

DRUGS (22)
  1. ONGLYZA TABS [Suspect]
     Indication: TYPE 2 DIABETES MELLITUS
  2. NOVOLOG [Concomitant]
     Dosage: NOVOLOG FLEX-PEN
  3. MENTAX [Concomitant]
     Indication: DIABETIC NEUROPATHY
  4. MAVIK [Concomitant]
     Indication: HYPERTENSION
  5. VERAPAMIL [Concomitant]
     Indication: MIGRAINE
  6. NEXIUM [Concomitant]
     Indication: GASTROOESOPHAGEAL REFLUX DISEASE
  7. ALLEGRA [Concomitant]
     Indication: HYPERSENSITIVITY
  8. IMITREX [Concomitant]
     Indication: MIGRAINE
  9. AMITRIPTYLINE [Concomitant]
     Indication: HEADACHE
  10. NEURONTIN [Concomitant]
     Indication: NEURALGIA
  11. ESTROGEN [Concomitant]
  12. HYDROCHLOROTHIAZIDE [Concomitant]
  13. SYMBICORT [Concomitant]
  14. SUCRALFATE [Concomitant]
  15. ESTRADIOL [Concomitant]
  16. BENAZEPRIL HCL [Concomitant]
  17. AMBIEN [Concomitant]
  18. DEMEROL [Concomitant]
  19. MIRALAX [Concomitant]
  20. EPINEPHRINE [Concomitant]
  21. VERAPAMIL [Concomitant]
  22. GABAPENTIN [Concomitant]

REACTIONS (5)
  - Spinal disorder [Unknown]
  - Coeliac disease [Unknown]
  - Weight increased [Unknown]
  - Drug intolerance [Unknown]
  - Post lumbar puncture syndrome [Unknown]
